FAERS Safety Report 24291331 (Version 1)
Quarter: 2024Q3

REPORT INFORMATION
  Report Type: Spontaneous
  Country: US (occurrence: None)
  Receive Date: 20240906
  Receipt Date: 20240906
  Transmission Date: 20241017
  Serious: No
  Sender: DOMPE FARMACEUTICI
  Company Number: US-FARMAPROD-202308-202308-2507

PATIENT
  Age: 67 Year
  Sex: Female

DRUGS (10)
  1. OXERVATE [Suspect]
     Active Substance: CENEGERMIN-BKBJ
     Indication: Neurotrophic keratopathy
     Route: 047
     Dates: start: 20230818
  2. OXERVATE [Suspect]
     Active Substance: CENEGERMIN-BKBJ
  3. OXERVATE [Suspect]
     Active Substance: CENEGERMIN-BKBJ
  4. LYSINE [Concomitant]
     Active Substance: LYSINE
  5. BIOTIN [Concomitant]
     Active Substance: BIOTIN
  6. CYANOCOBALAMIN\DEXPANTHENOL\NIACINAMIDE\PYRIDOXINE HYDROCHLORIDE\RIBOF [Concomitant]
     Active Substance: CYANOCOBALAMIN\DEXPANTHENOL\NIACINAMIDE\PYRIDOXINE HYDROCHLORIDE\RIBOFLAVIN 5^-PHOSPHATE SODIUM\THIA
  7. CALTRATE [Concomitant]
     Active Substance: CALCIUM CARBONATE
     Dosage: GUMMY BITES
  8. MULTIVITAMIN GUMMIES [Concomitant]
  9. REFRESH OPTIVE MEGA-3 [Concomitant]
     Active Substance: CARBOXYMETHYLCELLULOSE SODIUM\GLYCERIN\POLYSORBATE 80
  10. LUMIGAN [Concomitant]
     Active Substance: BIMATOPROST

REACTIONS (4)
  - Eye pain [Unknown]
  - Foreign body sensation in eyes [Unknown]
  - Eye swelling [Unknown]
  - Corneal oedema [Unknown]

NARRATIVE: CASE EVENT DATE: 20230801
